FAERS Safety Report 5446316-1 (Version None)
Quarter: 2007Q3

REPORT INFORMATION
  Report Type: 
  Country: None (occurrence: None)
  Receive Date: 20070907
  Receipt Date: 20070829
  Transmission Date: 20080115
  Serious: Yes (Hospitalization)
  Sender: FDA-Public Use
  Company Number: GB-ASTRAZENECA-2007GB01776

PATIENT
  Age: 68 Year
  Sex: Male

DRUGS (5)
  1. LISINOPRIL [Suspect]
     Indication: HYPERTENSION
     Route: 048
  2. MESALAMINE [Suspect]
     Indication: COLITIS ULCERATIVE
     Route: 048
     Dates: start: 20070420, end: 20070430
  3. ALLOPURINOL [Concomitant]
     Indication: GOUT
     Route: 048
     Dates: end: 20070430
  4. LANSOPRAZOLE [Concomitant]
     Indication: DYSPEPSIA
     Route: 048
  5. MELOXICAM [Concomitant]
     Indication: PAIN
     Dosage: NOT TAKEN FOR LAST TWO TO THREE WEEKS
     Route: 048

REACTIONS (2)
  - LETHARGY [None]
  - RENAL FAILURE ACUTE [None]
